FAERS Safety Report 4499487-8 (Version None)
Quarter: 2004Q4

REPORT INFORMATION
  Report Type: 
  Country: None (occurrence: None)
  Receive Date: 20040928
  Receipt Date: 20040628
  Transmission Date: 20050328
  Serious: No
  Sender: FDA-Public Use
  Company Number: 04P-163-0264876-00

PATIENT
  Age: 80 Year
  Sex: Female
  Weight: 68.0396 kg

DRUGS (6)
  1. HUMIRA [Suspect]
     Indication: RHEUMATOID ARTHRITIS
     Dosage: 40 MG, 1 IN 2 WK, SUBCUTANEOUS
     Route: 058
     Dates: start: 20040517
  2. COUMADIN [Concomitant]
  3. UNKNOWN THYROID MEDICATION [Concomitant]
  4. METHOTREXATE [Concomitant]
  5. SULFASALAZINE [Concomitant]
  6. CELECOXIB [Concomitant]

REACTIONS (1)
  - DRUG INEFFECTIVE [None]
